FAERS Safety Report 9498841 (Version 2)
Quarter: 2013Q3

REPORT INFORMATION
  Report Type: Spontaneous
  Country: US (occurrence: US)
  Receive Date: 20130904
  Receipt Date: 20130904
  Transmission Date: 20140515
  Serious: Yes (Disabling, Other)
  Sender: FDA-Public Use
  Company Number: US-009507513-1111USA02492

PATIENT
  Sex: Female
  Weight: 45.36 kg

DRUGS (3)
  1. FOSAMAX [Suspect]
     Indication: BONE LOSS
     Dosage: 70 MG, UNK
     Route: 048
     Dates: start: 2000, end: 2006
  2. BONIVA [Suspect]
     Indication: BONE LOSS
     Dosage: 150 MG, UNK
     Route: 048
     Dates: start: 2006, end: 201005
  3. HORMONES (UNSPECIFIED) [Concomitant]
     Dates: start: 1990, end: 200603

REACTIONS (56)
  - Cardiac disorder [Unknown]
  - Cardiac disorder [Unknown]
  - Haemorrhagic infarction [Unknown]
  - Thrombosis [Unknown]
  - Osteonecrosis of jaw [Not Recovered/Not Resolved]
  - Oral disorder [Unknown]
  - Tooth disorder [Unknown]
  - Oral infection [Unknown]
  - Exostosis [Unknown]
  - Impaired healing [Unknown]
  - Temporomandibular joint syndrome [Unknown]
  - Tooth disorder [Unknown]
  - Hypothyroidism [Unknown]
  - Fall [Unknown]
  - Spinal fracture [Unknown]
  - Osteomyelitis [Not Recovered/Not Resolved]
  - Fungal infection [Unknown]
  - Left ventricular failure [Unknown]
  - Rib fracture [Unknown]
  - Pleural effusion [Unknown]
  - Pulmonary oedema [Unknown]
  - Atrial fibrillation [Unknown]
  - Scoliosis [Unknown]
  - Arthropathy [Unknown]
  - Radiculopathy [Unknown]
  - Tooth disorder [Unknown]
  - Tooth disorder [Unknown]
  - Fistula [Recovered/Resolved]
  - Tooth disorder [Unknown]
  - Dental caries [Unknown]
  - Uterine leiomyoma [Unknown]
  - Tooth disorder [Unknown]
  - Local swelling [Unknown]
  - Neuralgia [Unknown]
  - Epistaxis [Unknown]
  - Nasal septum deviation [Unknown]
  - Gastrointestinal pain [Unknown]
  - Attention deficit/hyperactivity disorder [Unknown]
  - Tremor [Unknown]
  - Presyncope [Unknown]
  - Amnesia [Unknown]
  - Vasodilatation [Unknown]
  - Tooth disorder [Unknown]
  - Fistula [Recovered/Resolved]
  - Dental caries [Unknown]
  - Tooth fracture [Unknown]
  - Tooth abscess [Unknown]
  - Bone lesion [Unknown]
  - Lymphadenopathy [Recovered/Resolved]
  - Back pain [Unknown]
  - Headache [Unknown]
  - Headache [Unknown]
  - Dizziness [Unknown]
  - Nausea [Unknown]
  - Vomiting [Unknown]
  - Diarrhoea [Recovered/Resolved]
